FAERS Safety Report 19514754 (Version 3)
Quarter: 2021Q3

REPORT INFORMATION
  Report Type: Report from Study
  Country: US (occurrence: US)
  Receive Date: 20210709
  Receipt Date: 20210928
  Transmission Date: 20211014
  Serious: Yes (Hospitalization, Other)
  Sender: FDA-Public Use
  Company Number: US-TAKEDA-2021TUS039301

PATIENT
  Age: 32 Year
  Sex: Female

DRUGS (16)
  1. TEDUGLUTIDE [Suspect]
     Active Substance: TEDUGLUTIDE
     Dosage: 4.2 MILLIGRAM
     Route: 058
     Dates: start: 20210528
  2. TEDUGLUTIDE [Suspect]
     Active Substance: TEDUGLUTIDE
     Indication: SHORT-BOWEL SYNDROME
     Dosage: 4.2 MILLIGRAM, QD
     Route: 058
     Dates: start: 202105
  3. TEDUGLUTIDE [Suspect]
     Active Substance: TEDUGLUTIDE
     Dosage: 0.42 MILLILITER, QD
     Route: 058
     Dates: start: 20210527
  4. TEDUGLUTIDE [Suspect]
     Active Substance: TEDUGLUTIDE
     Dosage: 0.42 MILLILITER, QD
     Route: 058
     Dates: start: 20210527
  5. TEDUGLUTIDE [Suspect]
     Active Substance: TEDUGLUTIDE
     Dosage: 0.42 MILLILITER, QD
     Route: 058
     Dates: start: 20210527
  6. TEDUGLUTIDE [Suspect]
     Active Substance: TEDUGLUTIDE
     Dosage: 0.42 MILLILITER, QD
     Route: 058
     Dates: start: 20210527
  7. TEDUGLUTIDE [Suspect]
     Active Substance: TEDUGLUTIDE
     Dosage: 4.2 MILLIGRAM
     Route: 058
     Dates: start: 20210528
  8. TEDUGLUTIDE [Suspect]
     Active Substance: TEDUGLUTIDE
     Indication: SHORT-BOWEL SYNDROME
     Dosage: 4.2 MILLIGRAM, QD
     Route: 058
     Dates: start: 202105
  9. TEDUGLUTIDE [Suspect]
     Active Substance: TEDUGLUTIDE
     Dosage: 4.2 MILLIGRAM
     Route: 058
     Dates: start: 20210528
  10. TEDUGLUTIDE [Suspect]
     Active Substance: TEDUGLUTIDE
     Indication: SHORT-BOWEL SYNDROME
     Dosage: 4.2 MILLIGRAM, QD
     Route: 058
     Dates: start: 202105
  11. TEDUGLUTIDE [Suspect]
     Active Substance: TEDUGLUTIDE
     Indication: SHORT-BOWEL SYNDROME
     Dosage: 4.2 MILLIGRAM, QD
     Route: 058
     Dates: start: 202105
  12. TEDUGLUTIDE [Suspect]
     Active Substance: TEDUGLUTIDE
     Dosage: 0.42 MILLILITER, QD
     Route: 058
     Dates: start: 202105
  13. TEDUGLUTIDE [Suspect]
     Active Substance: TEDUGLUTIDE
     Dosage: 0.42 MILLILITER, QD
     Route: 058
     Dates: start: 202105
  14. TEDUGLUTIDE [Suspect]
     Active Substance: TEDUGLUTIDE
     Dosage: 0.42 MILLILITER, QD
     Route: 058
     Dates: start: 202105
  15. TEDUGLUTIDE [Suspect]
     Active Substance: TEDUGLUTIDE
     Dosage: 4.2 MILLIGRAM
     Route: 058
     Dates: start: 20210528
  16. TEDUGLUTIDE [Suspect]
     Active Substance: TEDUGLUTIDE
     Dosage: 0.42 MILLILITER, QD
     Route: 058
     Dates: start: 202105

REACTIONS (9)
  - Thirst [Unknown]
  - Peripheral swelling [Unknown]
  - Headache [Unknown]
  - Abdominal pain [Unknown]
  - Tenderness [Unknown]
  - Injection site bruising [Unknown]
  - Device related infection [Unknown]
  - Fatigue [Unknown]
  - Blood iron decreased [Unknown]

NARRATIVE: CASE EVENT DATE: 20210614
